FAERS Safety Report 4786517-9 (Version None)
Quarter: 2005Q4

REPORT INFORMATION
  Report Type: 
  Country: None (occurrence: None)
  Receive Date: 20051003
  Receipt Date: 20050923
  Transmission Date: 20060501
  Serious: Yes (Other)
  Sender: FDA-Public Use
  Company Number: GB-ABBOTT-05P-167-0312042-00

PATIENT
  Age: 39 Year
  Sex: Female

DRUGS (4)
  1. VALPROATE SODIUM [Suspect]
     Indication: CONVULSION
  2. VALPROATE SODIUM [Interacting]
  3. ZAPONEX [Interacting]
     Indication: DRUG USE FOR UNKNOWN INDICATION
     Route: 048
     Dates: start: 20050201
  4. AMISULPRIDE [Concomitant]
     Indication: DRUG USE FOR UNKNOWN INDICATION
     Route: 065

REACTIONS (4)
  - CONVULSION [None]
  - DRUG INTERACTION [None]
  - HALLUCINATION, AUDITORY [None]
  - SALIVARY HYPERSECRETION [None]
